FAERS Safety Report 5385411-2 (Version None)
Quarter: 2007Q3

REPORT INFORMATION
  Report Type: 
  Country: None (occurrence: None)
  Receive Date: 20070706
  Receipt Date: 20070706
  Transmission Date: 20080115
  Serious: Yes (Other)
  Sender: FDA-Public Use
  Company Number: None

PATIENT
  Age: 56 Year
  Sex: Male

DRUGS (3)
  1. PHOSPHOSODA GINGER LEMON [Suspect]
     Indication: COLONOSCOPY
     Dosage: 45 ML;X1;PO
     Route: 048
     Dates: start: 20070624, end: 20070624
  2. PHOSPHOSODA GINGER LEMON [Suspect]
  3. DULCOLAX [Suspect]
     Indication: COLONOSCOPY
     Dosage: X1;PO
     Route: 048
     Dates: start: 20070624, end: 20070624

REACTIONS (4)
  - ASTHENIA [None]
  - DIZZINESS [None]
  - HYPERHIDROSIS [None]
  - THIRST [None]
